FAERS Safety Report 7286319-8 (Version None)
Quarter: 2011Q1

REPORT INFORMATION
  Report Type: 
  Country: None (occurrence: None)
  Receive Date: 20110128
  Receipt Date: 20110113
  Transmission Date: 20110831
  Serious: Yes (Death, Hospitalization)
  Sender: FDA-Public Use
  Company Number: NSR_00127_2011

PATIENT
  Age: 35 Year
  Sex: Male

DRUGS (6)
  1. LISINOPRIL [Suspect]
     Indication: PRODUCT USED FOR UNKNOWN INDICATION
     Dosage: (NOT THE PRESCRIBED AMOUNT ORAL)
     Route: 048
  2. CITALOPRAM HYDROBROMIDE [Suspect]
     Indication: PRODUCT USED FOR UNKNOWN INDICATION
     Dosage: (NOT THE PRESCRIBED AMOUNT ORAL)
     Route: 048
  3. COLCHICINE [Suspect]
     Indication: PRODUCT USED FOR UNKNOWN INDICATION
     Dosage: (NOT THE PRESCRIBED AMOUNT ORAL)
     Route: 048
  4. AMLODIPINE [Suspect]
     Indication: PRODUCT USED FOR UNKNOWN INDICATION
     Dosage: (NOT THE PRESCRIBED AMOUNT ORAL)
     Route: 048
  5. ALLOPURINOL [Suspect]
     Indication: PRODUCT USED FOR UNKNOWN INDICATION
     Dosage: (NOT THE PRESCRIBED AMOUNT ORAL)
     Route: 048
  6. ACETAMINOPHEN [Suspect]
     Indication: PRODUCT USED FOR UNKNOWN INDICATION
     Dosage: (NOT THE PRESCRIBED AMOUNT ORAL)
     Route: 048

REACTIONS (17)
  - APNOEA [None]
  - HYPOTENSION [None]
  - RHABDOMYOLYSIS [None]
  - ASPARTATE AMINOTRANSFERASE INCREASED [None]
  - BRADYCARDIA [None]
  - SHOCK [None]
  - COMPLETED SUICIDE [None]
  - BLOOD GLUCOSE INCREASED [None]
  - OXYGEN SATURATION DECREASED [None]
  - OVERDOSE [None]
  - PAIN [None]
  - DIALYSIS [None]
  - ALANINE AMINOTRANSFERASE INCREASED [None]
  - HYPERGLYCAEMIA [None]
  - RENAL FAILURE [None]
  - LOSS OF CONSCIOUSNESS [None]
  - HYPERKALAEMIA [None]
